FAERS Safety Report 25640818 (Version 2)
Quarter: 2025Q4

REPORT INFORMATION
  Report Type: Spontaneous
  Country: US (occurrence: US)
  Receive Date: 20250804
  Receipt Date: 20251212
  Transmission Date: 20260117
  Serious: Yes (Other)
  Sender: ELI LILLY AND COMPANY
  Company Number: US-ELI_LILLY_AND_COMPANY-US202507026354

PATIENT
  Age: 53 Year
  Sex: Female

DRUGS (23)
  1. TRULICITY [Suspect]
     Active Substance: DULAGLUTIDE
     Indication: Type 2 diabetes mellitus
     Dosage: 0.75 MG, WEEKLY (1/W)
     Route: 065
     Dates: start: 20220428, end: 20220921
  2. TRULICITY [Suspect]
     Active Substance: DULAGLUTIDE
     Indication: Weight control
     Dosage: 1.5 MG, WEEKLY (1/W)
     Route: 065
     Dates: start: 20220928, end: 20230825
  3. TRULICITY [Suspect]
     Active Substance: DULAGLUTIDE
     Indication: Cardiovascular event prophylaxis
     Dosage: 3 MG, WEEKLY (1/W)
     Route: 065
     Dates: start: 20230902, end: 20231206
  4. TRULICITY [Suspect]
     Active Substance: DULAGLUTIDE
     Dosage: 4.5 MG, WEEKLY (1/W)
     Route: 065
     Dates: start: 20231213, end: 20231213
  5. MOUNJARO [Suspect]
     Active Substance: TIRZEPATIDE
     Indication: Type 2 diabetes mellitus
     Dosage: 10 MG, WEEKLY (1/W)
     Route: 065
     Dates: start: 20240812, end: 20240905
  6. MOUNJARO [Suspect]
     Active Substance: TIRZEPATIDE
     Indication: Type 2 diabetes mellitus
     Dosage: 10 MG, WEEKLY (1/W)
     Route: 065
     Dates: start: 20240812, end: 20240905
  7. MOUNJARO [Suspect]
     Active Substance: TIRZEPATIDE
     Indication: Weight control
     Dosage: 10 MG, WEEKLY (1/W)
     Route: 065
     Dates: start: 20241113, end: 20241212
  8. MOUNJARO [Suspect]
     Active Substance: TIRZEPATIDE
     Indication: Weight control
     Dosage: 10 MG, WEEKLY (1/W)
     Route: 065
     Dates: start: 20241113, end: 20241212
  9. MOUNJARO [Suspect]
     Active Substance: TIRZEPATIDE
     Indication: Cardiovascular event prophylaxis
  10. MOUNJARO [Suspect]
     Active Substance: TIRZEPATIDE
     Indication: Cardiovascular event prophylaxis
  11. MOUNJARO [Suspect]
     Active Substance: TIRZEPATIDE
     Indication: Type 2 diabetes mellitus
     Dosage: 12.5 MG, WEEKLY (1/W)
     Route: 065
     Dates: start: 20240913, end: 20241105
  12. MOUNJARO [Suspect]
     Active Substance: TIRZEPATIDE
     Indication: Type 2 diabetes mellitus
     Dosage: 12.5 MG, WEEKLY (1/W)
     Route: 065
     Dates: start: 20240913, end: 20241105
  13. MOUNJARO [Suspect]
     Active Substance: TIRZEPATIDE
     Indication: Weight control
     Dosage: 12.5 MG, WEEKLY (1/W)
     Route: 065
     Dates: start: 20241203
  14. MOUNJARO [Suspect]
     Active Substance: TIRZEPATIDE
     Indication: Weight control
     Dosage: 12.5 MG, WEEKLY (1/W)
     Route: 065
     Dates: start: 20241203
  15. MOUNJARO [Suspect]
     Active Substance: TIRZEPATIDE
     Indication: Cardiovascular event prophylaxis
  16. MOUNJARO [Suspect]
     Active Substance: TIRZEPATIDE
     Indication: Cardiovascular event prophylaxis
  17. METFORMIN [Concomitant]
     Active Substance: METFORMIN HYDROCHLORIDE
     Indication: Diabetes mellitus
  18. GLIPIZIDE [Concomitant]
     Active Substance: GLIPIZIDE
     Indication: Diabetes mellitus
  19. VICTOZA [Concomitant]
     Active Substance: LIRAGLUTIDE
     Indication: Diabetes mellitus
  20. JARDIANCE [Concomitant]
     Active Substance: EMPAGLIFLOZIN
     Indication: Diabetes mellitus
  21. FARXIGA [Concomitant]
     Active Substance: DAPAGLIFLOZIN PROPANEDIOL
     Indication: Diabetes mellitus
  22. GLUCAGON [Concomitant]
     Active Substance: GLUCAGON
     Indication: Diabetes mellitus
  23. ADMELOG [Concomitant]
     Active Substance: INSULIN LISPRO
     Indication: Diabetes mellitus

REACTIONS (7)
  - Intestinal obstruction [Recovered/Resolved]
  - Impaired gastric emptying [Recovered/Resolved]
  - Nausea [Recovered/Resolved]
  - Vomiting [Recovered/Resolved]
  - Constipation [Recovered/Resolved]
  - Diarrhoea [Recovered/Resolved]
  - Abdominal pain [Recovered/Resolved]

NARRATIVE: CASE EVENT DATE: 20231101
